FAERS Safety Report 17486394 (Version 1)
Quarter: 2020Q1

REPORT INFORMATION
  Report Type: Report from Study
  Country: US (occurrence: US)
  Receive Date: 20200303
  Receipt Date: 20200303
  Transmission Date: 20200409
  Serious: Yes (Other)
  Sender: FDA-Public Use
  Company Number: US-ROCHE-2398277

PATIENT
  Age: 66 Year
  Sex: Female
  Weight: 74 kg

DRUGS (4)
  1. OCREVUS [Suspect]
     Active Substance: OCRELIZUMAB
     Indication: RELAPSING MULTIPLE SCLEROSIS
     Dosage: YES
     Route: 065
     Dates: start: 201906
  2. VALIUM [Suspect]
     Active Substance: DIAZEPAM
     Dosage: AS NEEDED
     Route: 048
     Dates: start: 2019
  3. VALIUM [Suspect]
     Active Substance: DIAZEPAM
     Indication: ANXIETY
     Route: 048
     Dates: start: 2018
  4. OCREVUS [Suspect]
     Active Substance: OCRELIZUMAB
     Indication: MULTIPLE SCLEROSIS

REACTIONS (25)
  - Scar [Not Recovered/Not Resolved]
  - Fatigue [Unknown]
  - Fall [Unknown]
  - Loss of consciousness [Unknown]
  - Pancreatitis [Recovered/Resolved]
  - Chest pain [Unknown]
  - Contusion [Recovered/Resolved]
  - Syncope [Unknown]
  - Agitation [Unknown]
  - Tenderness [Unknown]
  - Vertigo [Unknown]
  - Anxiety [Unknown]
  - Frustration tolerance decreased [Unknown]
  - Sleep disorder [Unknown]
  - Pain in extremity [Unknown]
  - Headache [Recovered/Resolved]
  - Inflammation [Unknown]
  - Pain [Unknown]
  - Vein disorder [Unknown]
  - Vitamin D deficiency [Unknown]
  - Mood swings [Unknown]
  - Depression [Unknown]
  - Administration site extravasation [Unknown]
  - Multiple sclerosis [Unknown]
  - Crying [Unknown]

NARRATIVE: CASE EVENT DATE: 2018
